FAERS Safety Report 18768131 (Version 1)
Quarter: 2021Q1

REPORT INFORMATION
  Report Type: Spontaneous
  Country: US (occurrence: US)
  Receive Date: 20210120
  Receipt Date: 20210120
  Transmission Date: 20210419
  Serious: Yes (Hospitalization)
  Sender: FDA-Public Use
  Company Number: None

PATIENT
  Age: 62 Year
  Sex: Male
  Weight: 77 kg

DRUGS (2)
  1. APIXABAN (APIXABAN 5MG TAB) [Suspect]
     Active Substance: APIXABAN
     Indication: PULMONARY EMBOLISM
     Route: 048
     Dates: start: 20200826, end: 20201112
  2. ASPIRIN (ASPIRIN 81MG TAB, EC) [Suspect]
     Active Substance: ASPIRIN
     Indication: CORONARY ARTERY DISEASE
     Route: 048
     Dates: start: 20160101, end: 20201112

REACTIONS (10)
  - Abdominal pain [None]
  - Orthostatic hypotension [None]
  - Haemorrhoids [None]
  - Gastrointestinal mucosa hyperaemia [None]
  - Therapy interrupted [None]
  - Gastric haemorrhage [None]
  - Haematochezia [None]
  - Haemoglobin decreased [None]
  - Large intestinal ulcer [None]
  - Large intestinal haemorrhage [None]

NARRATIVE: CASE EVENT DATE: 20201112
